FAERS Safety Report 15771418 (Version 1)
Quarter: 2018Q4

REPORT INFORMATION
  Report Type: Report from Study
  Country: ES (occurrence: ES)
  Receive Date: 20181228
  Receipt Date: 20181228
  Transmission Date: 20190205
  Serious: Yes (Hospitalization)
  Sender: FDA-Public Use
  Company Number: ES-MYLANLABS-2018M1027497

PATIENT
  Age: 88 Year
  Sex: Female

DRUGS (2)
  1. RISPERDAL FLAS [Interacting]
     Active Substance: RISPERIDONE
     Indication: SENILE DEMENTIA
     Dosage: 0.25 MG, QD
     Route: 048
     Dates: start: 20160111, end: 20160121
  2. CITALOPRAM [Suspect]
     Active Substance: CITALOPRAM HYDROBROMIDE
     Indication: DEPRESSION
     Dosage: 201 MG, QD
     Route: 048
     Dates: start: 20060524

REACTIONS (2)
  - Drug interaction [Unknown]
  - Somnolence [Recovered/Resolved]

NARRATIVE: CASE EVENT DATE: 20160116
